FAERS Safety Report 4835610-0 (Version None)
Quarter: 2005Q4

REPORT INFORMATION
  Report Type: 
  Country: None (occurrence: None)
  Receive Date: 20051121
  Receipt Date: 20001117
  Transmission Date: 20060501
  Serious: Yes (Hospitalization, Other)
  Sender: FDA-Public Use
  Company Number: 200510497BNE

PATIENT
  Sex: Male

DRUGS (5)
  1. NIFEDIPINE [Suspect]
     Dates: start: 19930101, end: 20050705
  2. APROVEL (IRBESARTAN) [Suspect]
     Dosage: 150 MG, TOTAL DAILY
  3. BENDROFLUMETHIAZIDE [Suspect]
     Dosage: 2.5 MG, TOTAL, DAILY
  4. ASASANTIN [Suspect]
  5. ASPIRIN [Suspect]

REACTIONS (3)
  - CALCULUS BLADDER [None]
  - MEDICATION ERROR [None]
  - RENAL FAILURE [None]
